FAERS Safety Report 9641887 (Version 1)
Quarter: 2013Q4

REPORT INFORMATION
  Report Type: Spontaneous
  Country: US (occurrence: US)
  Receive Date: 20131023
  Receipt Date: 20131023
  Transmission Date: 20140711
  Serious: Yes (Other)
  Sender: FDA-Public Use
  Company Number: US-PFIZER INC-2013289387

PATIENT
  Age: 5 Month
  Sex: 0

DRUGS (1)
  1. CARBOPLATIN [Suspect]
     Indication: CONGENITAL RETINOBLASTOMA
     Dosage: 2 CC OF 10 MG/CC
     Dates: start: 2008

REACTIONS (4)
  - Eyelid bleeding [Unknown]
  - Fibrosis [Unknown]
  - Fat necrosis [Unknown]
  - Eyelid oedema [Unknown]
